FAERS Safety Report 8206251-2 (Version None)
Quarter: 2012Q1

REPORT INFORMATION
  Report Type: 
  Country: None (occurrence: None)
  Receive Date: 20120313
  Receipt Date: 20120308
  Transmission Date: 20120608
  Serious: Yes (Other)
  Sender: FDA-Public Use
  Company Number: PHHY2012CA016815

PATIENT
  Sex: Female

DRUGS (8)
  1. TRAMADOL HYDROCHLORIDE/ACETAMINOPHEN [Concomitant]
  2. ZOLEDRONOC ACID [Suspect]
     Indication: OSTEOPOROSIS
     Dosage: 5 MG, YEARLY
     Route: 042
     Dates: start: 20090921
  3. ACCURETIC [Concomitant]
     Dosage: UNK UKN, QD
     Route: 048
  4. RASILEZ [Concomitant]
     Dosage: 150 MG, QD
     Route: 048
  5. ZOLEDRONOC ACID [Suspect]
     Dosage: 5 MG, YEARLY
     Route: 042
     Dates: start: 20100101
  6. ASPIRIN [Concomitant]
     Dosage: 81 MG, QD
     Route: 048
  7. TIAZAC [Concomitant]
  8. CALTRATE 600 + VITAMIN D [Concomitant]
     Dosage: UNK UKN, BID

REACTIONS (2)
  - FALL [None]
  - PATELLA FRACTURE [None]
